FAERS Safety Report 5774791-1 (Version None)
Quarter: 2008Q2

REPORT INFORMATION
  Report Type: 
  Country: None (occurrence: None)
  Receive Date: 20080612
  Receipt Date: 20080602
  Transmission Date: 20081010
  Serious: Yes (Death, Hospitalization)
  Sender: FDA-Public Use
  Company Number: 2008AL006242

PATIENT
  Age: 82 Year
  Sex: Male

DRUGS (7)
  1. DIGOXIN [Suspect]
     Indication: CARDIAC DISORDER
     Dosage: 0.125 MG, DAILY/BID, PO
     Route: 048
     Dates: start: 20071001
  2. FUROSEMIDE [Concomitant]
  3. FLOMAX [Concomitant]
  4. SPIRONOLACTONE [Concomitant]
  5. CAPTOPRIL [Concomitant]
  6. PROTONIX [Concomitant]
  7. METOPROLOL [Concomitant]

REACTIONS (12)
  - ASTHENIA [None]
  - CARDIAC FAILURE [None]
  - COMA [None]
  - CONFUSIONAL STATE [None]
  - DIARRHOEA [None]
  - FALL [None]
  - GENERAL PHYSICAL HEALTH DETERIORATION [None]
  - HEAD INJURY [None]
  - INCOHERENT [None]
  - ORAL INTAKE REDUCED [None]
  - PULMONARY OEDEMA [None]
  - WEIGHT DECREASED [None]
